FAERS Safety Report 5647443-6 (Version None)
Quarter: 2008Q1

REPORT INFORMATION
  Report Type: 
  Country: None (occurrence: None)
  Receive Date: 20080228
  Receipt Date: 20080219
  Transmission Date: 20080703
  Serious: No
  Sender: FDA-Public Use
  Company Number: WAES 0802USA04316

PATIENT
  Age: 46 Year
  Sex: Male
  Weight: 104.3273 kg

DRUGS (1)
  1. TOP IVOMEC UNK [Suspect]
     Indication: DRUG ADMINISTRATION ERROR
     Dosage: TOP
     Route: 061

REACTIONS (7)
  - ACCIDENTAL EXPOSURE [None]
  - ALPHA HAEMOLYTIC STREPTOCOCCAL INFECTION [None]
  - DEVICE MALFUNCTION [None]
  - DRUG HYPERSENSITIVITY [None]
  - HAEMATURIA [None]
  - RENAL IMPAIRMENT [None]
  - WOUND INFECTION STAPHYLOCOCCAL [None]
